FAERS Safety Report 4443008-2 (Version None)
Quarter: 2004Q3

REPORT INFORMATION
  Report Type: 
  Country: None (occurrence: None)
  Receive Date: 20040908
  Receipt Date: 20040831
  Transmission Date: 20050211
  Serious: Yes (Other)
  Sender: FDA-Public Use
  Company Number: PHFR2004GB03358

PATIENT
  Sex: Male

DRUGS (6)
  1. TERBINAFINE HCL [Suspect]
     Indication: TINEA BARBAE
     Dosage: 250 MG/DAY
     Route: 048
     Dates: start: 20040805, end: 20040806
  2. DIAZEPAM [Concomitant]
     Indication: BACK PAIN
     Dosage: 2 MG, QID
     Route: 048
     Dates: start: 20040715
  3. DICLOFENAC [Concomitant]
     Indication: BACK PAIN
     Dosage: 75 MG, BID
     Route: 048
     Dates: start: 20040525
  4. NEURONTIN [Concomitant]
     Indication: BACK PAIN
     Dosage: 400 MG, BID
     Route: 048
     Dates: start: 20040704
  5. SOLPADEINE [Concomitant]
     Indication: BACK PAIN
     Dosage: 2 OT, QID
     Route: 048
     Dates: start: 20040401
  6. MEPTAZINOL [Concomitant]
     Indication: BACK PAIN
     Dosage: 200 MG, QID
     Route: 048
     Dates: start: 20040629, end: 20040706

REACTIONS (3)
  - FEELING ABNORMAL [None]
  - LIMB INJURY [None]
  - SLEEP WALKING [None]
